FAERS Safety Report 4409609-2 (Version None)
Quarter: 2004Q3

REPORT INFORMATION
  Report Type: 
  Country: None (occurrence: None)
  Receive Date: 20040728
  Receipt Date: 20040716
  Transmission Date: 20050211
  Serious: Yes (Other)
  Sender: FDA-Public Use
  Company Number: PHBS2004JP09632

PATIENT
  Age: 84 Year
  Sex: Male

DRUGS (5)
  1. LUDIOMIL [Suspect]
     Indication: DEPRESSION
     Dosage: 50 MG/D
     Route: 048
     Dates: start: 20040706, end: 20040715
  2. LOXONIN [Concomitant]
     Route: 048
     Dates: start: 20040706
  3. MECOBALAMIN [Concomitant]
     Route: 048
     Dates: start: 20040706
  4. MUCOSTA [Concomitant]
     Route: 048
     Dates: start: 20040706
  5. MARZULENE S [Concomitant]
     Route: 048
     Dates: start: 20040706

REACTIONS (5)
  - BLOOD SODIUM DECREASED [None]
  - DIZZINESS [None]
  - FALL [None]
  - INAPPROPRIATE ANTIDIURETIC HORMONE SECRETION [None]
  - MEMORY IMPAIRMENT [None]
